FAERS Safety Report 5025572-8 (Version None)
Quarter: 2006Q2

REPORT INFORMATION
  Report Type: 
  Country: None (occurrence: None)
  Receive Date: 20060426
  Receipt Date: 20060208
  Transmission Date: 20061013
  Serious: Yes (Other)
  Sender: FDA-Public Use
  Company Number: 2006020429

PATIENT
  Sex: Female

DRUGS (2)
  1. LYRICA [Suspect]
     Indication: FEELING HOT
     Dosage: 50 MG (50 MG,1 IN 1 D)
     Dates: start: 20060206
  2. DICLOFENAC SODIUM [Concomitant]

REACTIONS (4)
  - BALANCE DISORDER [None]
  - DIZZINESS [None]
  - NAUSEA [None]
  - THINKING ABNORMAL [None]
